FAERS Safety Report 5978137-5 (Version None)
Quarter: 2008Q4

REPORT INFORMATION
  Report Type: 
  Country: None (occurrence: None)
  Receive Date: 20081126
  Receipt Date: 20081117
  Transmission Date: 20090506
  Serious: Yes (Hospitalization, Other)
  Sender: FDA-Public Use
  Company Number: 2008SP020857

PATIENT
  Age: 58 Year
  Sex: Female

DRUGS (3)
  1. PEG-INTRON [Suspect]
     Indication: HEPATITIS C
     Dosage: SC
     Dates: start: 20080704
  2. RIBAVIRIN [Suspect]
     Indication: HEPATITIS C
     Dosage: PO
     Route: 048
     Dates: start: 20080704
  3. VALIUM [Concomitant]

REACTIONS (31)
  - AFFECT LABILITY [None]
  - AGGRESSION [None]
  - ARTHRITIS [None]
  - BALANCE DISORDER [None]
  - BLISTER [None]
  - BLOOD URINE PRESENT [None]
  - BONE PAIN [None]
  - CONFUSIONAL STATE [None]
  - COUGH [None]
  - CYSTITIS [None]
  - DEHYDRATION [None]
  - DEPRESSION [None]
  - EAR PAIN [None]
  - FALL [None]
  - FATIGUE [None]
  - FEELING ABNORMAL [None]
  - HEPATIC PAIN [None]
  - KIDNEY INFECTION [None]
  - LYMPHADENOPATHY [None]
  - MALAISE [None]
  - MENTAL DISORDER [None]
  - NASOPHARYNGITIS [None]
  - NERVOUS SYSTEM DISORDER [None]
  - OROPHARYNGEAL BLISTERING [None]
  - PAIN [None]
  - PANIC ATTACK [None]
  - RENAL PAIN [None]
  - SUICIDAL IDEATION [None]
  - THINKING ABNORMAL [None]
  - TONGUE DRY [None]
  - URINARY INCONTINENCE [None]
